FAERS Safety Report 14221913 (Version 1)
Quarter: 2017Q4

REPORT INFORMATION
  Report Type: Spontaneous
  Country: US (occurrence: US)
  Receive Date: 20171124
  Receipt Date: 20171124
  Transmission Date: 20180321
  Serious: Yes (Other)
  Sender: FDA-Public Use
  Company Number: US-ALVOGEN-2017-ALVOGEN-093646

PATIENT
  Age: 62 Year
  Sex: Male
  Weight: 86.18 kg

DRUGS (5)
  1. METFORMIN HYDROCHLORIDE. [Concomitant]
     Active Substance: METFORMIN HYDROCHLORIDE
     Indication: GLYCOSYLATED HAEMOGLOBIN INCREASED
     Dates: start: 2015
  2. LISINOPRIL. [Suspect]
     Active Substance: LISINOPRIL
     Indication: HYPERTENSION
     Dates: start: 201505
  3. ROSUVASTATIN. [Suspect]
     Active Substance: ROSUVASTATIN
     Indication: BLOOD CHOLESTEROL INCREASED
     Route: 048
     Dates: start: 2015
  4. BYDUREON [Suspect]
     Active Substance: EXENATIDE
     Indication: WEIGHT DECREASED
     Route: 058
     Dates: start: 20170824
  5. JANUMET [Concomitant]
     Active Substance: METFORMIN HYDROCHLORIDE\SITAGLIPTIN PHOSPHATE
     Indication: BLOOD GLUCOSE INCREASED
     Route: 048
     Dates: start: 2016

REACTIONS (8)
  - Injection site pruritus [Unknown]
  - Injection site irritation [Unknown]
  - Injection site nodule [Recovering/Resolving]
  - Blood pressure increased [Unknown]
  - Blood cholesterol increased [Unknown]
  - Glycosylated haemoglobin increased [Unknown]
  - Glycosylated haemoglobin decreased [Unknown]
  - Hypertension [Unknown]

NARRATIVE: CASE EVENT DATE: 201505
